FAERS Safety Report 21435834 (Version 1)
Quarter: 2022Q4

REPORT INFORMATION
  Report Type: Spontaneous
  Country: TW (occurrence: TW)
  Receive Date: 20221010
  Receipt Date: 20221010
  Transmission Date: 20230113
  Serious: Yes (Hospitalization)
  Sender: FDA-Public Use
  Company Number: TW-TASMAN PHARMA, INC.-2022TSM00126

PATIENT
  Age: 62 Year
  Sex: Male

DRUGS (3)
  1. CLOZAPINE [Suspect]
     Active Substance: CLOZAPINE
     Indication: Delusion of parasitosis
     Dosage: 175 MG, 1X/DAY
     Route: 065
  2. CLOZAPINE [Suspect]
     Active Substance: CLOZAPINE
     Dosage: 125 MG, 1X/DAY
     Route: 065
  3. CLOZAPINE [Suspect]
     Active Substance: CLOZAPINE
     Dosage: 75 MG, 1X/DAY
     Route: 065

REACTIONS (1)
  - Pleurothotonus [Recovering/Resolving]
